FAERS Safety Report 16659433 (Version 1)
Quarter: 2019Q3

REPORT INFORMATION
  Report Type: Spontaneous
  Country: US (occurrence: US)
  Receive Date: 20190802
  Receipt Date: 20190802
  Transmission Date: 20191004
  Serious: No
  Sender: FDA-Public Use
  Company Number: US-DRREDDYS-USA/USA/19/0112427

PATIENT
  Age: 65 Year
  Sex: Male

DRUGS (2)
  1. VENLAFAXINE HYDROCHLORIDE ER CAPSULES, 75 MG (BASE) [Suspect]
     Active Substance: VENLAFAXINE HYDROCHLORIDE
     Indication: DEPRESSION
     Dosage: ONE IN THE MORNING
     Route: 048
     Dates: start: 20190515, end: 20190615
  2. AMITRIPTYLINE [Concomitant]
     Active Substance: AMITRIPTYLINE
     Indication: PRODUCT USED FOR UNKNOWN INDICATION
     Dosage: ONE IN THE MORNING

REACTIONS (2)
  - Decreased appetite [Recovered/Resolved]
  - Dry mouth [Recovered/Resolved]

NARRATIVE: CASE EVENT DATE: 20190517
